FAERS Safety Report 24806832 (Version 1)
Quarter: 2025Q1

REPORT INFORMATION
  Report Type: Spontaneous
  Country: PT (occurrence: PT)
  Receive Date: 20250104
  Receipt Date: 20250104
  Transmission Date: 20250409
  Serious: Yes (Life-Threatening, Other)
  Sender: AUROBINDO
  Company Number: PT-INFARMED-A202412-229

PATIENT
  Age: 90 Year
  Sex: Female

DRUGS (8)
  1. AMOXICILLIN\CLAVULANIC ACID [Suspect]
     Active Substance: AMOXICILLIN\CLAVULANIC ACID
     Indication: Wound treatment
     Route: 042
     Dates: start: 20230908, end: 20230908
  2. ELIQUIS [Concomitant]
     Active Substance: APIXABAN
     Indication: Product used for unknown indication
     Dosage: 5 MILLIGRAM, ONCE A DAY
     Route: 048
  3. BISOPROLOL FUMARATE [Concomitant]
     Active Substance: BISOPROLOL FUMARATE
     Indication: Product used for unknown indication
     Dosage: 5 MILLIGRAM, ONCE A DAY
     Route: 048
  4. Difrarel [Concomitant]
     Indication: Product used for unknown indication
     Dosage: 1000 MILLIGRAM, ONCE A DAY
     Route: 048
  5. TRIMETAZIDINE [Concomitant]
     Active Substance: TRIMETAZIDINE
     Indication: Product used for unknown indication
     Dosage: 35 MILLIGRAM, ONCE A DAY
     Route: 048
  6. Daflon [Concomitant]
     Indication: Product used for unknown indication
     Dosage: 1000 MILLIGRAM, ONCE A DAY
     Route: 048
  7. NITROGLYCERIN [Concomitant]
     Active Substance: NITROGLYCERIN
     Indication: Product used for unknown indication
     Route: 062
  8. HYDROCHLOROTHIAZIDE\LOSARTAN POTASSIUM [Concomitant]
     Active Substance: HYDROCHLOROTHIAZIDE\LOSARTAN POTASSIUM
     Indication: Product used for unknown indication
     Dosage: 1 DOSAGE FORM, ONCE A DAY
     Route: 048

REACTIONS (1)
  - Cardio-respiratory arrest [Recovered/Resolved]

NARRATIVE: CASE EVENT DATE: 20230908
